FAERS Safety Report 7796704-3 (Version None)
Quarter: 2011Q4

REPORT INFORMATION
  Report Type: 
  Country: None (occurrence: None)
  Receive Date: 20111005
  Receipt Date: 20110926
  Transmission Date: 20120403
  Serious: Yes (Life-Threatening)
  Sender: FDA-Public Use
  Company Number: FR-JNJFOC-20110910610

PATIENT
  Age: 68 Year
  Sex: Male

DRUGS (8)
  1. KERLONE [Concomitant]
     Route: 065
  2. HUMIRA [Suspect]
     Indication: PSORIATIC ARTHROPATHY
     Route: 065
     Dates: start: 20110401
  3. REMICADE [Suspect]
     Indication: PSORIATIC ARTHROPATHY
     Dosage: 42 INFUSIONS
     Route: 042
     Dates: start: 20060101, end: 20110301
  4. METFORMIN HCL [Concomitant]
     Route: 065
  5. EZETIMIBE [Concomitant]
     Route: 065
  6. DIPROSALIC [Concomitant]
     Route: 065
  7. HEXAQUINE [Concomitant]
     Route: 065
  8. ALLOPURINOL [Concomitant]
     Route: 065

REACTIONS (1)
  - SMALL CELL LUNG CANCER METASTATIC [None]
